FAERS Safety Report 9341650 (Version 3)
Quarter: 2013Q3

REPORT INFORMATION
  Report Type: Spontaneous
  Country: US (occurrence: US)
  Receive Date: 20130611
  Receipt Date: 20130725
  Transmission Date: 20140515
  Serious: Yes (Other)
  Sender: FDA-Public Use
  Company Number: US-PFIZER INC-2013173057

PATIENT
  Sex: Male

DRUGS (1)
  1. PROCARDIA XL [Suspect]
     Dosage: UNK

REACTIONS (3)
  - Diabetes mellitus [Unknown]
  - Accident [Unknown]
  - Memory impairment [Unknown]
